FAERS Safety Report 7000543-0 (Version None)
Quarter: 2010Q3

REPORT INFORMATION
  Report Type: 
  Country: None (occurrence: None)
  Receive Date: 20100920
  Receipt Date: 20100113
  Transmission Date: 20110219
  Serious: Yes (Hospitalization, Other)
  Sender: FDA-Public Use
  Company Number: US-ASTRAZENECA-2006UW27497

PATIENT
  Age: 15572 Day
  Sex: Female
  Weight: 135.2 kg

DRUGS (21)
  1. SEROQUEL [Suspect]
     Indication: DEPRESSION
     Dosage: 25MG TO 200MG
     Route: 048
     Dates: start: 20000505
  2. SEROQUEL [Suspect]
     Dosage: 25 MG TO 100 MG
     Route: 048
     Dates: end: 20010101
  3. SEROQUEL [Suspect]
     Dosage: TWO AM/ONE PM
     Route: 048
     Dates: start: 20000523
  4. SEROQUEL [Suspect]
     Dosage: 25 MG ONE AM AND THREE PM
     Route: 048
     Dates: start: 20010329
  5. EFFEXOR [Concomitant]
  6. SERZONE [Concomitant]
     Dates: start: 19960305
  7. PAXIL [Concomitant]
  8. PROZAC [Concomitant]
  9. DEPAKOTE [Concomitant]
     Dates: start: 19991111
  10. WELLBUTRIN SR [Concomitant]
  11. ASPIRIN [Concomitant]
     Indication: CARDIAC DISORDER
     Dates: start: 20040319
  12. LOVASTATIN [Concomitant]
  13. LASIX [Concomitant]
     Route: 048
     Dates: start: 20010422
  14. CYMBALTA [Concomitant]
  15. SULINDAC [Concomitant]
  16. CATAPRES [Concomitant]
     Indication: BLOOD PRESSURE
     Dates: start: 20040301
  17. CELEXA [Concomitant]
     Route: 048
     Dates: start: 20000523
  18. TRAZODONE HCL [Concomitant]
     Dosage: AT BEDTIME
  19. PREMARIN [Concomitant]
     Dates: start: 19991111
  20. TEGRETOL [Concomitant]
     Dates: start: 20000523
  21. ATENOLOL [Concomitant]
     Dosage: DAILY
     Dates: start: 20000905

REACTIONS (5)
  - BLOOD CHOLESTEROL INCREASED [None]
  - DIABETES MELLITUS [None]
  - DIABETES MELLITUS INADEQUATE CONTROL [None]
  - HYPERGLYCAEMIA [None]
  - TYPE 2 DIABETES MELLITUS [None]
